FAERS Safety Report 23622719 (Version 1)
Quarter: 2024Q1

REPORT INFORMATION
  Report Type: Spontaneous
  Country: GB (occurrence: None)
  Receive Date: 20240312
  Receipt Date: 20240312
  Transmission Date: 20240409
  Serious: Yes (Disabling)
  Sender: FDA-Public Use
  Company Number: 2024A044119

PATIENT
  Age: 37 Year
  Sex: Female
  Weight: 101 kg

DRUGS (3)
  1. DAPAGLIFLOZIN [Suspect]
     Active Substance: DAPAGLIFLOZIN
     Dosage: TAKE ONE TABLET ONCE A DAY
     Dates: start: 20240130
  2. ALOGLIPTIN [Concomitant]
     Active Substance: ALOGLIPTIN
     Indication: Diabetes mellitus
     Dosage: TAKE ONE TABLET ONCE A DAY FOR DIABETES
     Dates: start: 20240214
  3. METFORMIN [Concomitant]
     Active Substance: METFORMIN HYDROCHLORIDE
     Dosage: TAKE 5ML WITH BREAKFAST AND 5MLS WITH EVENING MEAL
     Dates: start: 20240124

REACTIONS (2)
  - Dizziness [Recovered/Resolved]
  - Nausea [Recovering/Resolving]
